FAERS Safety Report 7632997-0 (Version None)
Quarter: 2011Q3

REPORT INFORMATION
  Report Type: 
  Country: None (occurrence: None)
  Receive Date: 20110725
  Receipt Date: 20110718
  Transmission Date: 20111222
  Serious: Yes (Hospitalization)
  Sender: FDA-Public Use
  Company Number: PHHY2011MX65464

PATIENT
  Age: 81 Year
  Sex: Female

DRUGS (2)
  1. EXELON [Suspect]
     Indication: DEMENTIA ALZHEIMER'S TYPE
     Dosage: 1 PATCH (5 CM2/4.6 MG) PER DAY
     Route: 062
     Dates: start: 20100701
  2. PRISTIQ [Concomitant]
     Dosage: 1 DF, QD
     Route: 048
     Dates: start: 20110601

REACTIONS (3)
  - UPPER LIMB FRACTURE [None]
  - WRIST FRACTURE [None]
  - FALL [None]
